FAERS Safety Report 6686942-5 (Version None)
Quarter: 2010Q2

REPORT INFORMATION
  Report Type: 
  Country: None (occurrence: None)
  Receive Date: 20100416
  Receipt Date: 20100416
  Transmission Date: 20101027
  Serious: Yes (Other)
  Sender: FDA-Public Use
  Company Number: None

PATIENT
  Age: 8 Year
  Sex: Female
  Weight: 24.4942 kg

DRUGS (1)
  1. PATANASE [Suspect]
     Indication: SINUS CONGESTION
     Dosage: 1 PUFF, EACH NOSTRIL MORN/EVE METERED SPRAY
     Dates: start: 20100316

REACTIONS (4)
  - ANXIETY [None]
  - CRYING [None]
  - NERVOUSNESS [None]
  - TREMOR [None]
